FAERS Safety Report 9352179 (Version 2)
Quarter: 2013Q2

REPORT INFORMATION
  Report Type: Spontaneous
  Country: US (occurrence: US)
  Receive Date: 20130617
  Receipt Date: 20130627
  Transmission Date: 20140414
  Serious: Yes (Other)
  Sender: FDA-Public Use
  Company Number: US-PFIZER INC-2013180400

PATIENT
  Age: 69 Year
  Sex: Female
  Weight: 51 kg

DRUGS (4)
  1. PRISTIQ [Suspect]
     Indication: DEPRESSION
     Dosage: 100 MG, 1X/DAY
     Route: 048
     Dates: start: 201305
  2. DESIPRAMINE [Suspect]
     Indication: ANXIETY
     Dosage: 50 MG, 1X/DAY
     Dates: start: 20130516, end: 201305
  3. DESIPRAMINE [Suspect]
     Dosage: 100 MG, 1X/DAY
     Dates: start: 201305
  4. LIPITOR [Concomitant]
     Indication: BLOOD CHOLESTEROL INCREASED
     Dosage: UNK

REACTIONS (4)
  - Hallucination [Unknown]
  - Therapeutic response unexpected [Unknown]
  - Heart rate increased [Unknown]
  - Tremor [Unknown]
